FAERS Safety Report 9061931 (Version 1)
Quarter: 2013Q1

REPORT INFORMATION
  Report Type: Spontaneous
  Country: US (occurrence: US)
  Receive Date: 20130129
  Receipt Date: 20130129
  Transmission Date: 20140127
  Serious: No
  Sender: FDA-Public Use
  Company Number: US-ASTRAZENECA-2013SE02824

PATIENT
  Age: 58 Year
  Sex: Female

DRUGS (1)
  1. SYMBICORT PMDI [Suspect]
     Dosage: UNKNOWN
     Route: 055

REACTIONS (5)
  - Dyspnoea [Unknown]
  - Fall [Unknown]
  - Malaise [Unknown]
  - Visual impairment [Unknown]
  - Drug dose omission [Unknown]
